FAERS Safety Report 24391886 (Version 1)
Quarter: 2024Q4

REPORT INFORMATION
  Report Type: Spontaneous
  Country: US (occurrence: US)
  Receive Date: 20241003
  Receipt Date: 20241003
  Transmission Date: 20250114
  Serious: No
  Sender: SANOFI AVENTIS
  Company Number: US-SANOFI-02228635

PATIENT
  Age: 75 Year
  Sex: Female

DRUGS (1)
  1. PLAVIX [Suspect]
     Active Substance: CLOPIDOGREL BISULFATE
     Indication: Prophylaxis
     Dosage: 75 MG

REACTIONS (6)
  - Pain [Unknown]
  - Loss of personal independence in daily activities [Unknown]
  - Myalgia [Unknown]
  - Arthralgia [Unknown]
  - Arthritis [Unknown]
  - Rash [Unknown]
